FAERS Safety Report 4298946-0 (Version None)
Quarter: 2004Q1

REPORT INFORMATION
  Report Type: 
  Country: None (occurrence: None)
  Receive Date: 20040217
  Receipt Date: 20040203
  Transmission Date: 20041129
  Serious: Yes (Death, Hospitalization)
  Sender: FDA-Public Use
  Company Number: 2004-BP-00783MX

PATIENT
  Age: 71 Year
  Sex: Male

DRUGS (5)
  1. SPIRIVA [Suspect]
     Indication: CHRONIC OBSTRUCTIVE AIRWAYS DISEASE
     Dosage: 18MCG (18 MCG, 1 KAI O.D.)
     Route: 045
     Dates: start: 20030401, end: 20040131
  2. MICCIL [Concomitant]
  3. LANOXIN [Concomitant]
  4. ISORBID (ISOSORBIDE DINITRATE) [Concomitant]
  5. ASPIRINA PROTECT [Concomitant]

REACTIONS (3)
  - CONDITION AGGRAVATED [None]
  - CONGESTIVE CARDIOMYOPATHY [None]
  - SUDDEN DEATH [None]
